FAERS Safety Report 4657431-4 (Version None)
Quarter: 2005Q2

REPORT INFORMATION
  Report Type: 
  Country: None (occurrence: None)
  Receive Date: 20050509
  Receipt Date: 20050509
  Transmission Date: 20051028
  Serious: Yes (Life-Threatening, Other)
  Sender: FDA-Public Use
  Company Number: None

PATIENT
  Age: 62 Year
  Sex: Female
  Weight: 98.4306 kg

DRUGS (2)
  1. PROLIXIN DECANOATE [Suspect]
     Indication: SCHIZOPHRENIA
     Dosage: 37.5 MG 30 EVERY 2 WKS IM
     Route: 030
     Dates: start: 20040908
  2. PROLIXIN DECANOATE [Suspect]
     Indication: SCHIZOPHRENIA
     Dosage: 50 MG EVERY 2 WKS IM
     Route: 030
     Dates: start: 20040901

REACTIONS (5)
  - JAW DISORDER [None]
  - LETHARGY [None]
  - NERVOUSNESS [None]
  - TREMOR [None]
  - WEIGHT INCREASED [None]
